FAERS Safety Report 22782313 (Version 5)
Quarter: 2023Q4

REPORT INFORMATION
  Report Type: Report from Study
  Country: US (occurrence: US)
  Receive Date: 20230803
  Receipt Date: 20231009
  Transmission Date: 20240110
  Serious: Yes (Death, Life-Threatening)
  Sender: FDA-Public Use
  Company Number: US-PFIZER INC-PV202300130974

PATIENT
  Age: 57 Year
  Sex: Female
  Weight: 85.9 kg

DRUGS (3)
  1. DOXORUBICIN HYDROCHLORIDE [Suspect]
     Active Substance: DOXORUBICIN HYDROCHLORIDE
     Indication: Acute lymphocytic leukaemia
     Dosage: CYCLE 1, 3, 5, 7, DAY 4
     Route: 042
     Dates: start: 20230710
  2. VINCRISTINE SULFATE [Suspect]
     Active Substance: VINCRISTINE SULFATE
     Indication: Acute lymphocytic leukaemia
     Dosage: CYLCE 1, 3, 5, 7, DAY 1, DAY 8
     Route: 042
     Dates: start: 20230710
  3. CYCLOPHOSPHAMIDE [Suspect]
     Active Substance: CYCLOPHOSPHAMIDE
     Indication: Acute lymphocytic leukaemia
     Dosage: CYLCE 1, 3, 5, 7, EVERY 12 HRS X 5 DOSES, DAYS 1-3
     Route: 042
     Dates: start: 20230707

REACTIONS (2)
  - Pneumonia [Fatal]
  - Respiratory failure [Not Recovered/Not Resolved]

NARRATIVE: CASE EVENT DATE: 20230719
